FAERS Safety Report 13054427 (Version 2)
Quarter: 2017Q1

REPORT INFORMATION
  Report Type: Spontaneous
  Country: US (occurrence: US)
  Receive Date: 20161222
  Receipt Date: 20170124
  Transmission Date: 20170428
  Serious: Yes (Other)
  Sender: FDA-Public Use
  Company Number: US-ENDO PHARMACEUTICALS INC.-2016-007334

PATIENT
  Age: 66 Year
  Sex: Male
  Weight: 128 kg

DRUGS (14)
  1. TESTOPEL [Suspect]
     Active Substance: TESTOSTERONE
     Indication: BLOOD TESTOSTERONE DECREASED
     Dosage: 6 PELLETS, EVERY 3 MONTHS
     Route: 058
     Dates: start: 20161201
  2. FLUTICASONE. [Concomitant]
     Active Substance: FLUTICASONE
     Indication: PRODUCT USED FOR UNKNOWN INDICATION
     Dosage: 2 SPRAYS (100 MCG) INTO EACH NOSTRIL DAILY
     Route: 045
  3. TESTOPEL [Suspect]
     Active Substance: TESTOSTERONE
     Indication: HYPOGONADISM
     Dosage: 10 PELLETS INSERTED
     Route: 058
     Dates: start: 201501
  4. OMEPRAZOLE. [Concomitant]
     Active Substance: OMEPRAZOLE
     Indication: PRODUCT USED FOR UNKNOWN INDICATION
     Dosage: 40 MG, DAILY
     Route: 048
  5. TESTOPEL [Suspect]
     Active Substance: TESTOSTERONE
     Dosage: 10 PELLETS INSERTED
     Route: 058
     Dates: start: 201601
  6. GABAPENTIN. [Concomitant]
     Active Substance: GABAPENTIN
     Indication: SPINAL COLUMN STENOSIS
     Dosage: 300 MG, 5 TIMES A DAY
     Route: 048
     Dates: start: 2013
  7. TOPIRAMATE. [Concomitant]
     Active Substance: TOPIRAMATE
     Indication: PRODUCT USED FOR UNKNOWN INDICATION
     Dosage: 25 MG, UNKNOWN
     Route: 065
  8. TESTOPEL [Suspect]
     Active Substance: TESTOSTERONE
     Dosage: 10 PELLETS INSERTED
     Route: 058
     Dates: start: 20160519
  9. SIMVASTATIN. [Concomitant]
     Active Substance: SIMVASTATIN
     Indication: BLOOD CHOLESTEROL INCREASED
     Dosage: 40 MG, DAILY
     Route: 048
     Dates: start: 2003
  10. OMEPRAZOLE. [Concomitant]
     Active Substance: OMEPRAZOLE
     Dosage: 20 MG, DAILY
     Route: 048
  11. BOTOX [Concomitant]
     Active Substance: ONABOTULINUMTOXINA
     Indication: NECK PAIN
     Dosage: UNK UNK, UNKNOWN
     Route: 065
     Dates: start: 201305
  12. TESTOPEL [Suspect]
     Active Substance: TESTOSTERONE
     Dosage: 10 PELLETS INSERTED
     Route: 058
     Dates: start: 20160825
  13. SERTRALINE [Concomitant]
     Active Substance: SERTRALINE HYDROCHLORIDE
     Indication: PAIN MANAGEMENT
     Dosage: 50 MG, DAILY
     Route: 048
     Dates: start: 2006
  14. TRANSDERM SCOP [Concomitant]
     Active Substance: SCOPOLAMINE
     Indication: PRODUCT USED FOR UNKNOWN INDICATION
     Dosage: 1 MG, EVERY 3 DAYS

REACTIONS (13)
  - Asthenia [Not Recovered/Not Resolved]
  - Vomiting [Recovering/Resolving]
  - Upper gastrointestinal haemorrhage [Not Recovered/Not Resolved]
  - Abdominal pain upper [Unknown]
  - Activities of daily living impaired [Recovered/Resolved]
  - Procedural complication [Not Recovered/Not Resolved]
  - Inappropriate schedule of drug administration [Recovered/Resolved]
  - Nausea [Recovering/Resolving]
  - Abasia [Recovered/Resolved]
  - Diarrhoea [Unknown]
  - Prescribed overdose [Not Recovered/Not Resolved]
  - Headache [Recovering/Resolving]
  - Chest pain [Recovered/Resolved]

NARRATIVE: CASE EVENT DATE: 2015
